FAERS Safety Report 24983380 (Version 1)
Quarter: 2025Q1

REPORT INFORMATION
  Report Type: Report from Study
  Country: US (occurrence: US)
  Receive Date: 20250219
  Receipt Date: 20250219
  Transmission Date: 20250409
  Serious: Yes (Hospitalization)
  Sender: ABBVIE
  Company Number: US-ABBVIE-6134465

PATIENT
  Age: 49 Year
  Sex: Female
  Weight: 68.038 kg

DRUGS (11)
  1. HUMIRA [Suspect]
     Active Substance: ADALIMUMAB
     Indication: Ankylosing spondylitis
     Route: 058
     Dates: start: 201906, end: 20191028
  2. HUMIRA [Suspect]
     Active Substance: ADALIMUMAB
     Indication: Uveitis
     Dosage: FORM STRENGTH - 40 MILLIGRAMS
     Route: 058
     Dates: start: 20241101
  3. HUMIRA [Suspect]
     Active Substance: ADALIMUMAB
     Route: 058
     Dates: start: 2022, end: 20240718
  4. HUMIRA [Suspect]
     Active Substance: ADALIMUMAB
     Route: 058
     Dates: start: 202409
  5. PREDNISONE [Concomitant]
     Active Substance: PREDNISONE
     Indication: Ankylosing spondylitis
  6. HYRIMOZ [Suspect]
     Active Substance: ADALIMUMAB-ADAZ
     Indication: Uveitis
     Route: 065
     Dates: start: 202407, end: 202409
  7. SINGULAIR [Concomitant]
     Active Substance: MONTELUKAST SODIUM
     Indication: Multiple allergies
  8. OMEPRAZOLE [Concomitant]
     Active Substance: OMEPRAZOLE
     Indication: Gastrooesophageal reflux disease
  9. LYRICA [Concomitant]
     Active Substance: PREGABALIN
     Indication: Neuralgia
  10. BROMFENAC [Concomitant]
     Active Substance: BROMFENAC
     Indication: Eye pain
  11. REMICADE [Concomitant]
     Active Substance: INFLIXIMAB
     Indication: Product used for unknown indication
     Dates: end: 202205

REACTIONS (7)
  - Precancerous lesion of digestive tract [Recovered/Resolved]
  - Malaise [Recovered/Resolved]
  - Eye pain [Unknown]
  - Ankylosing spondylitis [Recovered/Resolved]
  - Cystitis [Recovered/Resolved]
  - Back pain [Recovering/Resolving]
  - Drug ineffective [Unknown]

NARRATIVE: CASE EVENT DATE: 20190101
